FAERS Safety Report 8957074 (Version 2)
Quarter: 2013Q2

REPORT INFORMATION
  Report Type: Spontaneous
  Country: US (occurrence: US)
  Receive Date: 20121210
  Receipt Date: 20130419
  Transmission Date: 20140414
  Serious: Yes (Hospitalization, Other)
  Sender: FDA-Public Use
  Company Number: US-009507513-1207USA00008

PATIENT
  Sex: Female

DRUGS (4)
  1. FOSAMAX [Suspect]
     Indication: OSTEOPENIA
     Dosage: 70 MG, UNK
     Route: 048
     Dates: start: 200704, end: 200801
  2. FOSAMAX [Suspect]
     Indication: BONE DENSITY DECREASED
  3. ALENDRONATE SODIUM [Suspect]
     Indication: OSTEOPENIA
     Dosage: 70 MG, UNK
     Route: 048
     Dates: start: 200804, end: 200901
  4. ACTONEL [Suspect]
     Indication: OSTEOPENIA
     Dosage: 150 MG, UNK
     Route: 048
     Dates: start: 200905, end: 20101225

REACTIONS (13)
  - Femur fracture [Unknown]
  - Hip arthroplasty [Unknown]
  - Hip arthroplasty [Recovering/Resolving]
  - Partial lung resection [Unknown]
  - Bone graft [Unknown]
  - Osteoarthritis [Unknown]
  - Vitamin D deficiency [Unknown]
  - Tooth extraction [Unknown]
  - Chronic obstructive pulmonary disease [Unknown]
  - Pneumonia [Unknown]
  - Dermatitis contact [Unknown]
  - Bronchospasm [Unknown]
  - Drug hypersensitivity [Unknown]
